FAERS Safety Report 16688789 (Version 1)
Quarter: 2019Q4

REPORT INFORMATION
  Report Type: Spontaneous
  Country: US (occurrence: US)
  Receive Date: 20190809
  Receipt Date: 20190809
  Transmission Date: 20200122
  Serious: Yes (Hospitalization, Other)
  Sender: FDA-Public Use
  Company Number: None

PATIENT
  Age: 39 Year
  Sex: Female
  Weight: 57.15 kg

DRUGS (4)
  1. INFREQUENT ALCOHOL [Concomitant]
  2. INVEGA SUSTENNA [Suspect]
     Active Substance: PALIPERIDONE PALMITATE
     Indication: SCHIZOAFFECTIVE DISORDER
     Dosage: ?          QUANTITY:1 INJECTION(S);OTHER FREQUENCY:MONTHLY;?
     Route: 030
     Dates: start: 20190531
  3. ZYPREXA [Suspect]
     Active Substance: OLANZAPINE
     Indication: SCHIZOPHRENIA
     Dosage: ?          QUANTITY:1 TABLET(S);?
     Route: 048
  4. INVEGA SUSTENNA [Concomitant]
     Active Substance: PALIPERIDONE PALMITATE

REACTIONS (18)
  - Appetite disorder [None]
  - Rash [None]
  - Hypothyroidism [None]
  - Thinking abnormal [None]
  - Restlessness [None]
  - Hyperthyroidism [None]
  - Hypoaesthesia [None]
  - Weight increased [None]
  - Galactorrhoea [None]
  - Muscle spasms [None]
  - Loss of consciousness [None]
  - Drug ineffective [None]
  - Syncope [None]
  - Panic attack [None]
  - Blood prolactin increased [None]
  - Drooling [None]
  - Blood cholesterol increased [None]
  - Sedation [None]

NARRATIVE: CASE EVENT DATE: 20190623
